FAERS Safety Report 11115051 (Version 1)
Quarter: 2015Q2

REPORT INFORMATION
  Report Type: Spontaneous
  Country: FR (occurrence: None)
  Receive Date: 20150513
  Receipt Date: 20150513
  Transmission Date: 20150821
  Serious: Yes (Other)
  Sender: FDA-Public Use
  Company Number: FK201502169

PATIENT
  Age: 62 Year
  Sex: Male
  Weight: 94 kg

DRUGS (1)
  1. OXALIPLATIN 5MG/ML CONCENTRATE FOR SOLUTION FOR INFUSION (OXALIPLATIN) (OXALIPLATIN) [Suspect]
     Active Substance: OXALIPLATIN
     Indication: RECTAL CANCER
     Dosage: 85 MG/M2, CYCLICAL, INTRAVENOUS (NOT OTHERWISE SPECIFIED)
     Route: 042
     Dates: start: 20150323, end: 20150323

REACTIONS (2)
  - Skin reaction [None]
  - Circulatory collapse [None]

NARRATIVE: CASE EVENT DATE: 20150323
